FAERS Safety Report 15893524 (Version 1)
Quarter: 2019Q1

REPORT INFORMATION
  Report Type: Spontaneous
  Country: BE (occurrence: BE)
  Receive Date: 20190131
  Receipt Date: 20190131
  Transmission Date: 20190417
  Serious: Yes (Hospitalization, Other)
  Sender: FDA-Public Use
  Company Number: BE-BAXTER-2019BAX001560

PATIENT
  Age: 13 Year
  Sex: Male
  Weight: 61 kg

DRUGS (12)
  1. MESNA. [Concomitant]
     Active Substance: MESNA
     Dosage: UNK UNK,UNK,UNKNOWN
     Route: 042
     Dates: start: 20080714
  2. MESNA. [Concomitant]
     Active Substance: MESNA
     Indication: PRODUCT USED FOR UNKNOWN INDICATION
     Dosage: 1000MG/M?
     Route: 065
     Dates: start: 20080714, end: 20080714
  3. METHYLPREDNISOLONE. [Suspect]
     Active Substance: METHYLPREDNISOLONE
     Indication: PRODUCT USED FOR UNKNOWN INDICATION
     Dosage: UNK UNK,UNK,UNKNOWN
     Route: 037
     Dates: start: 20080716, end: 20080716
  4. THIOGUANINE [Concomitant]
     Active Substance: THIOGUANINE
     Indication: PRODUCT USED FOR UNKNOWN INDICATION
     Dosage: 60MG/M2/DAY
     Route: 048
     Dates: start: 20080714, end: 20080728
  5. CYTARABINE. [Suspect]
     Active Substance: CYTARABINE
     Dosage: 75MG/M2
     Route: 042
     Dates: start: 20080716, end: 20080719
  6. METHOTREXATE. [Suspect]
     Active Substance: METHOTREXATE
     Indication: PRODUCT USED FOR UNKNOWN INDICATION
     Dosage: 12 MG, UNK
     Route: 037
     Dates: start: 20080716, end: 20080716
  7. ENDOXAN 1000 MG - POUDRE POUR SOLUTION INJECTABLE [Suspect]
     Active Substance: CYCLOPHOSPHAMIDE
     Indication: PRODUCT USED FOR UNKNOWN INDICATION
     Dosage: 1000MG/M2
     Route: 042
     Dates: start: 20080714, end: 20080714
  8. SEDACID (OMEPRAZOLE) [Suspect]
     Active Substance: OMEPRAZOLE
     Indication: PRODUCT USED FOR UNKNOWN INDICATION
     Dosage: ONE ONCE A DAY (20 MG GASTRO-RESISTANT TABLET)
     Route: 048
     Dates: start: 20080307, end: 20080727
  9. CYTARABINE. [Suspect]
     Active Substance: CYTARABINE
     Indication: PRODUCT USED FOR UNKNOWN INDICATION
     Dosage: UNK UNK,UNK,
     Route: 037
     Dates: start: 20080716, end: 20080716
  10. COTRIMOXAZOLE [Suspect]
     Active Substance: SULFAMETHOXAZOLE\TRIMETHOPRIM
     Indication: PRODUCT USED FOR UNKNOWN INDICATION
     Dosage: UNK UNK,TWO TIMES A DAY,
     Route: 048
     Dates: start: 20080603
  11. CYTARABINE. [Suspect]
     Active Substance: CYTARABINE
     Dosage: 75MG/M?
     Route: 042
     Dates: start: 20080723, end: 20080726
  12. ONDANSETRON [Suspect]
     Active Substance: ONDANSETRON
     Indication: PRODUCT USED FOR UNKNOWN INDICATION
     Dosage: MAXIMUM 8MG 2 ONCE A DAY
     Route: 065
     Dates: start: 20080714, end: 20080729

REACTIONS (4)
  - Dysarthria [Recovered/Resolved]
  - Facial paralysis [Recovered/Resolved]
  - Stomatitis [Unknown]
  - Hemiparesis [Recovered/Resolved]

NARRATIVE: CASE EVENT DATE: 20080727
